FAERS Safety Report 12341330 (Version 1)
Quarter: 2016Q2

REPORT INFORMATION
  Report Type: Spontaneous
  Country: JP (occurrence: JP)
  Receive Date: 20160506
  Receipt Date: 20160506
  Transmission Date: 20160815
  Serious: Yes (Hospitalization)
  Sender: FDA-Public Use
  Company Number: JP-ABBVIE-14K-087-1326276-00

PATIENT
  Age: 56 Year
  Sex: Female

DRUGS (13)
  1. ROSUVASTATIN CALCIUM. [Concomitant]
     Active Substance: ROSUVASTATIN CALCIUM
     Indication: DYSLIPIDAEMIA
     Route: 048
  2. SODIUM VALPROATE [Concomitant]
     Active Substance: VALPROATE SODIUM
     Indication: MIGRAINE PROPHYLAXIS
  3. METOCLOPRAMIDE. [Concomitant]
     Active Substance: METOCLOPRAMIDE
     Indication: NAUSEA
  4. HUMIRA [Suspect]
     Active Substance: ADALIMUMAB
     Indication: PSORIATIC ARTHROPATHY
  5. INFLIXIMAB [Suspect]
     Active Substance: INFLIXIMAB
     Indication: PRODUCT USED FOR UNKNOWN INDICATION
     Dosage: 1ST AND 2ND DOSE OF 270 MG
     Route: 065
     Dates: start: 201104
  6. DIFENIDOL HYDROCHLORIDE [Concomitant]
     Active Substance: DIPHENIDOL HYDROCHLORIDE
     Indication: NAUSEA
  7. GLICLAZIDE [Concomitant]
     Active Substance: GLICLAZIDE
     Indication: NEPHROPATHY
     Route: 048
  8. METFORMIN HYDROCHLORIDE. [Concomitant]
     Active Substance: METFORMIN HYDROCHLORIDE
     Indication: NEPHROPATHY
     Route: 048
  9. GLUCOSE [Concomitant]
     Active Substance: DEXTROSE
     Indication: HYPOGLYCAEMIA
     Route: 048
     Dates: start: 20141024
  10. INFLIXIMAB [Suspect]
     Active Substance: INFLIXIMAB
     Dosage: THE 3RD TO 10TH DOSE: 300 MG
     Route: 065
     Dates: end: 201204
  11. BETAHISTINE MESILATE [Concomitant]
     Active Substance: BETAHISTINE MESILATE
     Indication: VERTIGO POSITIONAL
  12. DIFENIDOL HYDROCHLORIDE [Concomitant]
     Active Substance: DIPHENIDOL HYDROCHLORIDE
     Indication: VERTIGO POSITIONAL
  13. HUMIRA [Suspect]
     Active Substance: ADALIMUMAB
     Indication: PSORIASIS
     Route: 058
     Dates: start: 20130617, end: 201408

REACTIONS (10)
  - Headache [Unknown]
  - Tinnitus [Recovered/Resolved]
  - Loss of consciousness [Recovering/Resolving]
  - Vomiting [Recovering/Resolving]
  - Nausea [Not Recovered/Not Resolved]
  - Vertigo positional [Recovered/Resolved]
  - Multiple sclerosis [Unknown]
  - Neuromyopathy [Unknown]
  - Meningitis viral [Recovered/Resolved]
  - Acute disseminated encephalomyelitis [Unknown]

NARRATIVE: CASE EVENT DATE: 201406
